FAERS Safety Report 8100987-X (Version None)
Quarter: 2012Q1

REPORT INFORMATION
  Report Type: 
  Country: None (occurrence: None)
  Receive Date: 20120129
  Receipt Date: 20111123
  Transmission Date: 20120608
  Serious: Yes (Hospitalization)
  Sender: FDA-Public Use
  Company Number: US-ABBOTT-11P-163-0877189-00

PATIENT
  Sex: Female
  Weight: 63.106 kg

DRUGS (6)
  1. HUMIRA [Suspect]
     Indication: RHEUMATOID ARTHRITIS
     Route: 058
     Dates: end: 20100701
  2. HUMIRA [Suspect]
     Route: 058
     Dates: start: 20110101
  3. VITAMIN TAB [Concomitant]
     Indication: VITAMIN SUPPLEMENTATION
  4. HUMIRA [Suspect]
     Route: 058
     Dates: start: 20110101, end: 20110101
  5. HUMIRA [Suspect]
     Route: 058
     Dates: start: 20100901, end: 20110101
  6. UNKNOWN MEDICATIONS [Concomitant]
     Indication: RHEUMATOID ARTHRITIS

REACTIONS (2)
  - PNEUMONIA [None]
  - URINARY TRACT INFECTION [None]
